FAERS Safety Report 5120370-9 (Version None)
Quarter: 2006Q4

REPORT INFORMATION
  Report Type: 
  Country: None (occurrence: None)
  Receive Date: 20061004
  Receipt Date: 20060822
  Transmission Date: 20070319
  Serious: Yes (Hospitalization)
  Sender: FDA-Public Use
  Company Number: DE-BRISTOL-MYERS SQUIBB COMPANY-13484738

PATIENT
  Age: 48 Year
  Sex: Female
  Weight: 72 kg

DRUGS (8)
  1. CYCLOPHOSPHAMIDE [Suspect]
     Indication: BREAST CANCER
     Route: 042
     Dates: start: 20060614, end: 20060802
  2. TAXOL [Suspect]
     Indication: BREAST CANCER
     Route: 042
     Dates: start: 20060816, end: 20060906
  3. EPIRUBICIN [Suspect]
     Indication: BREAST CANCER
     Route: 042
     Dates: start: 20060614, end: 20060802
  4. XELODA [Suspect]
     Indication: BREAST CANCER
     Route: 048
     Dates: start: 20060817, end: 20060817
  5. ARANESP [Concomitant]
     Route: 058
     Dates: start: 20060614
  6. INNOHEP [Concomitant]
     Route: 058
  7. BROMAZANIL [Concomitant]
     Route: 048
  8. DARBEPOETIN ALFA [Concomitant]
     Route: 058

REACTIONS (2)
  - GASTRITIS [None]
  - HYPERSENSITIVITY [None]
